FAERS Safety Report 10083211 (Version 3)
Quarter: 2014Q2

REPORT INFORMATION
  Report Type: Report from Study
  Country: ZA (occurrence: ZA)
  Receive Date: 20140417
  Receipt Date: 20140425
  Transmission Date: 20141212
  Serious: Yes (Hospitalization)
  Sender: FDA-Public Use
  Company Number: ZA-BRISTOL-MYERS SQUIBB COMPANY-20638771

PATIENT
  Age: 34 Year
  Sex: Male
  Weight: 50.8 kg

DRUGS (3)
  1. STOCRIN CAPS [Suspect]
     Indication: HIV INFECTION
     Dosage: 21NOV13-06APR14:600MG:137DAYS?REST ON 10APR14-UNK
     Route: 048
     Dates: start: 20131121
  2. TRUVADA [Suspect]
     Indication: HIV INFECTION
     Dosage: 21NOV13-06APR14:500MG:137DAYS?REST ON 10APR14-UNK?TABS
     Route: 048
     Dates: start: 20131121
  3. ISONIAZID [Suspect]
     Indication: TUBERCULOSIS
     Dosage: 21NOV13-07APR14:300MG:138DAYS?REST ON 10APR14-UNK?TABS
     Route: 048
     Dates: start: 20131121

REACTIONS (1)
  - Meningitis cryptococcal [Recovering/Resolving]
